FAERS Safety Report 22019964 (Version 1)
Quarter: 2023Q1

REPORT INFORMATION
  Report Type: Spontaneous
  Country: US (occurrence: US)
  Receive Date: 20230222
  Receipt Date: 20230222
  Transmission Date: 20230418
  Serious: Yes (Hospitalization, Other)
  Sender: FDA-Public Use
  Company Number: US-MLMSERVICE-20230210-4098231-1

PATIENT
  Age: 32 Year
  Sex: Male

DRUGS (1)
  1. LOPERAMIDE HYDROCHLORIDE [Suspect]
     Active Substance: LOPERAMIDE HYDROCHLORIDE
     Indication: Drug abuse
     Dosage: TAKING UP TO 150 IMODIUM TABS DAILY
     Route: 065

REACTIONS (6)
  - Splenomegaly [Unknown]
  - Pancreatic leak [Unknown]
  - Drug abuse [Unknown]
  - Sphincter of Oddi dysfunction [Unknown]
  - Pancreatitis [Unknown]
  - Pleural effusion [Unknown]
